FAERS Safety Report 7137963-X (Version None)
Quarter: 2010Q4

REPORT INFORMATION
  Report Type: 
  Country: None (occurrence: None)
  Receive Date: 20101206
  Receipt Date: 20101123
  Transmission Date: 20110411
  Serious: Yes (Other)
  Sender: FDA-Public Use
  Company Number: SE-NOVOPROD-316666

PATIENT
  Sex: Male
  Weight: 64.8 kg

DRUGS (1)
  1. NORDITROPIN [Suspect]
     Indication: PRODUCT USED FOR UNKNOWN INDICATION
     Dosage: UNK
     Dates: start: 20080122, end: 20101006

REACTIONS (1)
  - KYPHOSCOLIOSIS [None]
